FAERS Safety Report 8612694 (Version 2)
Quarter: 2014Q2

REPORT INFORMATION
  Report Type: Spontaneous
  Country: GB (occurrence: None)
  Receive Date: 20120530
  Receipt Date: 20140407
  Transmission Date: 20141212
  Serious: Yes (Death, Hospitalization)
  Sender: FDA-Public Use
  Company Number: 1290531

PATIENT
  Age: 67 Year
  Sex: Male
  Weight: 38.56 kg

DRUGS (4)
  1. EPIRUBICIN HYDROCHLORIDE [Suspect]
     Indication: GASTRIC CANCER
     Dosage: INTRAVENOUS (NOT OTHERWISE SPECIFIED) 50 MILLIGRAM
     Route: 042
     Dates: start: 20110922
  2. CISPLATIN [Suspect]
     Dosage: INTRAVENOUS (NOT OTHERWISE SPECIFIED)
     Route: 042
     Dates: start: 20110922
  3. BEVACIZUMAB [Suspect]
     Indication: GASTRIC CANCER
     Dosage: INTRAVENOUS (NOT OTHERWISE SPECIFIED)
     Route: 042
     Dates: start: 20110922
  4. CAPECITABINE [Suspect]
     Indication: GASTRIC CANCER
     Dosage: ORAL 5250 MG MILLIGRAM(S)
     Route: 048
     Dates: start: 20110922

REACTIONS (7)
  - Post procedural haemorrhage [None]
  - Gastrointestinal anastomotic leak [None]
  - Atrial fibrillation [None]
  - Respiratory disorder [None]
  - Cardiac arrest [None]
  - Gastrointestinal anastomotic leak [None]
  - Arterial haemorrhage [None]
